FAERS Safety Report 15730092 (Version 1)
Quarter: 2018Q4

REPORT INFORMATION
  Report Type: Spontaneous
  Country: US (occurrence: US)
  Receive Date: 20181216
  Receipt Date: 20181216
  Transmission Date: 20190205
  Serious: Yes (Disabling)
  Sender: FDA-Public Use
  Company Number: None

PATIENT
  Age: 34 Year
  Sex: Female
  Weight: 58.5 kg

DRUGS (2)
  1. BROMOCRIPTINE [Suspect]
     Active Substance: BROMOCRIPTINE
     Indication: HYPERPROLACTINAEMIA
     Dosage: ?          QUANTITY:1 TABLET(S);?
     Route: 048
     Dates: start: 20100703, end: 20180524
  2. BROMOCRIPTINE [Suspect]
     Active Substance: BROMOCRIPTINE
     Indication: MENSTRUATION IRREGULAR
     Dosage: ?          QUANTITY:1 TABLET(S);?
     Route: 048
     Dates: start: 20100703, end: 20180524

REACTIONS (5)
  - Sensory disturbance [None]
  - Muscular weakness [None]
  - Haematoma [None]
  - Contusion [None]
  - Muscle spasms [None]

NARRATIVE: CASE EVENT DATE: 20180312
